FAERS Safety Report 9240337 (Version 1)
Quarter: 2013Q2

REPORT INFORMATION
  Report Type: Spontaneous
  Country: US (occurrence: None)
  Receive Date: 20130418
  Receipt Date: 20130418
  Transmission Date: 20140414
  Serious: Yes (Other)
  Sender: FDA-Public Use
  Company Number: None

PATIENT
  Age: 81 Year
  Sex: Female

DRUGS (5)
  1. ARICEPT [Suspect]
     Indication: DEMENTIA
     Route: 048
  2. LEVOTHYROXINE [Concomitant]
  3. CETIRIZINE [Concomitant]
  4. PAROXETINE [Concomitant]
  5. METOPROLOL [Concomitant]

REACTIONS (7)
  - Nausea [None]
  - Vomiting [None]
  - Dizziness [None]
  - Hyperhidrosis [None]
  - Diarrhoea [None]
  - Bradycardia [None]
  - Toxicity to various agents [None]
